FAERS Safety Report 9814396 (Version 1)
Quarter: 2014Q1

REPORT INFORMATION
  Report Type: Spontaneous
  Country: JP (occurrence: JP)
  Receive Date: 20140113
  Receipt Date: 20140113
  Transmission Date: 20141002
  Serious: Yes (Other)
  Sender: FDA-Public Use
  Company Number: PHHY2014JP002711

PATIENT
  Age: 82 Year
  Sex: Male
  Weight: 69 kg

DRUGS (9)
  1. GLIVEC [Suspect]
     Indication: GASTROINTESTINAL STROMAL TUMOUR
     Dosage: 400 MG, DAILY
     Route: 048
     Dates: start: 20130729, end: 20131022
  2. GLIVEC [Interacting]
     Dosage: 400 MG, DAILY
     Route: 048
     Dates: start: 20131107
  3. WARFARIN [Interacting]
     Indication: CEREBRAL INFARCTION
     Dosage: 1.5 MG, DAILY
     Route: 048
     Dates: start: 2011, end: 20131029
  4. WARFARIN [Interacting]
     Dosage: 1.75 MG, DAILY
     Route: 048
     Dates: start: 20131030
  5. WARFARIN [Interacting]
     Dosage: UNK UKN, UNK
  6. BLOPRESS [Concomitant]
     Dosage: UNK UKN, UNK
     Route: 048
  7. LUPRAC [Concomitant]
     Dosage: UNK UKN, UNK
     Route: 048
  8. BIOFERMIN [Concomitant]
     Dosage: UNK UKN, UNK
     Route: 048
  9. LEUCON [Concomitant]
     Dosage: UNK UKN, UNK
     Route: 048

REACTIONS (1)
  - Prothrombin time prolonged [Recovering/Resolving]
